FAERS Safety Report 5813840-9 (Version None)
Quarter: 2008Q3

REPORT INFORMATION
  Report Type: 
  Country: None (occurrence: None)
  Receive Date: 20080717
  Receipt Date: 20080709
  Transmission Date: 20090109
  Serious: Yes (Congenital Anomaly, Other)
  Sender: FDA-Public Use
  Company Number: PHFR2003IE00975

PATIENT
  Sex: Female

DRUGS (2)
  1. GLEEVEC [Suspect]
     Dosage: MATERNAL DOSE: 400 MG/DAY
     Route: 064
  2. INTERFERON [Suspect]
     Dosage: MATERNAL DOSE: 3 ML/DAY
     Route: 064

REACTIONS (5)
  - DRUG EXPOSURE DURING PREGNANCY [None]
  - EXOMPHALOS [None]
  - HEMIVERTEBRA [None]
  - PREMATURE BABY [None]
  - RENAL APLASIA [None]
